FAERS Safety Report 5493286-6 (Version None)
Quarter: 2007Q4

REPORT INFORMATION
  Report Type: 
  Country: None (occurrence: None)
  Receive Date: 20071022
  Receipt Date: 20071022
  Transmission Date: 20080405
  Serious: Yes (Life-Threatening, Hospitalization, Disabling)
  Sender: FDA-Public Use
  Company Number: None

PATIENT
  Age: 43 Year
  Sex: Male
  Weight: 76.6579 kg

DRUGS (9)
  1. DILANTIN [Suspect]
     Indication: GRAND MAL CONVULSION
     Dosage: 100 MG TID PO
     Route: 048
     Dates: start: 20070806, end: 20070808
  2. ATENOLOL [Concomitant]
  3. ACETAMINOPHEN [Concomitant]
  4. HYDROXYZINE PAMOATE [Concomitant]
  5. IBUPROFEN [Concomitant]
  6. CLOZAPINE [Concomitant]
  7. BENZTROPINE [Concomitant]
  8. DIPHENHYDRAMINE HCL [Concomitant]
  9. DOCUSATE SODIUM [Concomitant]

REACTIONS (2)
  - SCAR [None]
  - TOXIC EPIDERMAL NECROLYSIS [None]
